FAERS Safety Report 17845571 (Version 1)
Quarter: 2020Q3

REPORT INFORMATION
  Report Type: Spontaneous
  Country: US (occurrence: US)
  Receive Date: 20200601
  Receipt Date: 20200601
  Transmission Date: 20201104
  Serious: No
  Sender: FDA-Public Use
  Company Number: US-PFIZER INC-2020210550

PATIENT
  Age: 61 Year
  Sex: Female

DRUGS (16)
  1. MISOPROSTOL. [Suspect]
     Active Substance: MISOPROSTOL
     Dosage: UNK
  2. SALSALATE. [Suspect]
     Active Substance: SALSALATE
     Dosage: UNK
  3. SULINDAC. [Suspect]
     Active Substance: SULINDAC
     Dosage: UNK
  4. INDOMETHACIN. [Suspect]
     Active Substance: INDOMETHACIN
     Dosage: UNK
  5. NABUMETONE. [Suspect]
     Active Substance: NABUMETONE
     Dosage: UNK
  6. VENTOLIN HFA [Concomitant]
     Active Substance: ALBUTEROL SULFATE
     Dosage: UNK
  7. NAPROXEN. [Suspect]
     Active Substance: NAPROXEN
     Dosage: UNK
  8. TOLMETIN [Suspect]
     Active Substance: TOLMETIN
     Dosage: UNK
  9. PIROXICAM. [Suspect]
     Active Substance: PIROXICAM
     Dosage: UNK
  10. CAMPHOR [Suspect]
     Active Substance: CAMPHOR
     Dosage: UNK
  11. KETOROLAC TROMETHAMINE. [Suspect]
     Active Substance: KETOROLAC TROMETHAMINE
     Dosage: UNK
  12. DICLOFENAC EPOLAMINE [Suspect]
     Active Substance: DICLOFENAC EPOLAMINE
     Dosage: UNK
  13. CHLORPHENIRAMINE C [Suspect]
     Active Substance: CHLORPHENIRAMINE MALEATE
     Dosage: UNK
  14. OXAPROZIN. [Suspect]
     Active Substance: OXAPROZIN
     Dosage: UNK
  15. KETOPROFEN. [Suspect]
     Active Substance: KETOPROFEN
     Dosage: UNK
  16. MELOXICAM. [Suspect]
     Active Substance: MELOXICAM
     Dosage: UNK

REACTIONS (1)
  - Drug hypersensitivity [Unknown]
